FAERS Safety Report 6564413-4 (Version None)
Quarter: 2010Q1

REPORT INFORMATION
  Report Type: 
  Country: None (occurrence: None)
  Receive Date: 20100201
  Receipt Date: 20100126
  Transmission Date: 20100710
  Serious: Yes (Hospitalization)
  Sender: FDA-Public Use
  Company Number: DE-BRISTOL-MYERS SQUIBB COMPANY-14874101

PATIENT
  Age: 63 Year
  Sex: Female

DRUGS (10)
  1. ORENCIA [Suspect]
     Indication: RHEUMATOID ARTHRITIS
     Dosage: CUMULATIVE DOSE 6750MG
     Route: 042
     Dates: start: 20090101, end: 20090701
  2. DECORTIN-H [Concomitant]
     Dosage: H5, 1 DF = 2 (UNITS UNSPECIFIED)
     Dates: start: 20040701
  3. DICLOFENAC [Concomitant]
     Dosage: 75SL
  4. ENALAPRIL MALEATE [Concomitant]
  5. OMEPRAZOLE [Concomitant]
  6. SYMBICORT [Concomitant]
     Dosage: SYMBICORT DA.
  7. CALCIUM CARBONATE + COLECALCIFEROL [Concomitant]
     Dosage: CALCIUM STADA
  8. ALENDRONATE SODIUM [Concomitant]
  9. OMEGA 3 FATTY ACID [Concomitant]
  10. TRAMADOL [Concomitant]
     Dosage: 10 DROPS 2X/DAY

REACTIONS (4)
  - ANGINA PECTORIS [None]
  - FATIGUE [None]
  - NAUSEA [None]
  - WEIGHT DECREASED [None]
